FAERS Safety Report 17470707 (Version 1)
Quarter: 2020Q1

REPORT INFORMATION
  Report Type: Spontaneous
  Country: US (occurrence: US)
  Receive Date: 20200217
  Receipt Date: 20200217
  Transmission Date: 20200409
  Serious: No
  Sender: FDA-Public Use
  Company Number: None

PATIENT
  Age: 84 Year
  Sex: Male

DRUGS (4)
  1. KEYTRUDA [Concomitant]
     Active Substance: PEMBROLIZUMAB
  2. LOSARTAN. [Concomitant]
     Active Substance: LOSARTAN
  3. INLYTA [Suspect]
     Active Substance: AXITINIB
     Indication: RENAL CANCER
     Route: 048
     Dates: start: 20191006
  4. FINASTERIDE. [Concomitant]
     Active Substance: FINASTERIDE

REACTIONS (2)
  - Dysphonia [None]
  - Pruritus [None]

NARRATIVE: CASE EVENT DATE: 20200216
